FAERS Safety Report 4359520-0 (Version None)
Quarter: 2004Q2

REPORT INFORMATION
  Report Type: 
  Country: None (occurrence: None)
  Receive Date: 20040511
  Receipt Date: 20040429
  Transmission Date: 20050107
  Serious: Yes (Death, Hospitalization)
  Sender: FDA-Public Use
  Company Number: REL-RIR-108

PATIENT
  Age: 16 Year
  Sex: Female

DRUGS (1)
  1. RYTHMOL [Suspect]
     Dosage: UNK, ORAL
     Route: 048

REACTIONS (9)
  - CARDIO-RESPIRATORY ARREST [None]
  - CONVULSION [None]
  - DRUG INEFFECTIVE [None]
  - DRUG TOXICITY [None]
  - LUNG CREPITATION [None]
  - MYDRIASIS [None]
  - SELF-MEDICATION [None]
  - TONIC CLONIC MOVEMENTS [None]
  - VOMITING [None]
